FAERS Safety Report 7316316-5 (Version None)
Quarter: 2011Q1

REPORT INFORMATION
  Report Type: 
  Country: None (occurrence: None)
  Receive Date: 20110225
  Receipt Date: 20110218
  Transmission Date: 20110831
  Serious: Yes (Other)
  Sender: FDA-Public Use
  Company Number: US-US-EMD SERONO, INC.-7007462

PATIENT
  Sex: Female
  Weight: 79 kg

DRUGS (3)
  1. REBIF [Suspect]
     Indication: MULTIPLE SCLEROSIS
     Route: 058
     Dates: start: 20050923, end: 20100929
  2. TOPROL-XL [Concomitant]
     Indication: HYPERTENSION
  3. TOPROL-XL [Concomitant]
     Indication: HEART RATE INCREASED

REACTIONS (10)
  - ABDOMINAL DISCOMFORT [None]
  - CANDIDIASIS [None]
  - STAPHYLOCOCCAL INFECTION [None]
  - INTRATHECAL PUMP INSERTION [None]
  - DRUG HYPERSENSITIVITY [None]
  - FUNGAL INFECTION [None]
  - BACK PAIN [None]
  - DECUBITUS ULCER [None]
  - INJECTION SITE HAEMATOMA [None]
  - INJECTION SITE HAEMORRHAGE [None]
